FAERS Safety Report 9514972 (Version 1)
Quarter: 2013Q1

REPORT INFORMATION
  Report Type: Spontaneous
  Country: US (occurrence: None)
  Receive Date: 20130305
  Receipt Date: 20130305
  Transmission Date: 20140127
  Serious: Yes (Other)
  Sender: FDA-Public Use
  Company Number: 163-21880-12122949

PATIENT
  Age: 47 Year
  Sex: Female

DRUGS (9)
  1. REVLIMID (LENALIDOMIDE) [Suspect]
     Indication: PLASMA CELL MYELOMA
     Route: 048
     Dates: start: 20120920
  2. METFORMIN HCL (METFORMIN HYDROCHLORIDE) [Concomitant]
  3. DEXAMETHASONE [Concomitant]
  4. AMITRIPTYLINE HCL [Concomitant]
  5. ATROVENT HFA (IPRATROPIUM BROMIDE) [Concomitant]
  6. RAMIPRIL [Concomitant]
  7. ATOVASTATIN CALCIUM [Concomitant]
  8. PROAIR HFA (SALBUTAMOL SULFATE) [Concomitant]
  9. ASPIRINE (ACETYLSALICYLIC ACID) [Concomitant]

REACTIONS (1)
  - Pruritus [None]
